FAERS Safety Report 6931794-9 (Version None)
Quarter: 2010Q3

REPORT INFORMATION
  Report Type: 
  Country: None (occurrence: None)
  Receive Date: 20100819
  Receipt Date: 20100809
  Transmission Date: 20110219
  Serious: Yes (Disabling)
  Sender: FDA-Public Use
  Company Number: CH-BIOGENIDEC-2010BI027328

PATIENT
  Age: 14 Year
  Sex: Female

DRUGS (1)
  1. AVONEX [Suspect]
     Indication: MULTIPLE SCLEROSIS
     Dates: start: 20090101

REACTIONS (2)
  - DIARRHOEA [None]
  - INFLUENZA LIKE ILLNESS [None]
